FAERS Safety Report 12427682 (Version 1)
Quarter: 2016Q2

REPORT INFORMATION
  Report Type: Spontaneous
  Country: US (occurrence: None)
  Receive Date: 20160601
  Receipt Date: 20160601
  Transmission Date: 20160815
  Serious: No
  Sender: FDA-Public Use
  Company Number: None

PATIENT
  Age: 24 Year
  Sex: Female
  Weight: 73.94 kg

DRUGS (7)
  1. TRILEPTAL [Concomitant]
     Active Substance: OXCARBAZEPINE
  2. LORAZEPAM SANDOZ [Suspect]
     Active Substance: LORAZEPAM
     Indication: SEIZURE
     Route: 048
     Dates: start: 20160526, end: 20160531
  3. ONFI [Concomitant]
     Active Substance: CLOBAZAM
  4. VITAMIN B12 [Concomitant]
     Active Substance: CYANOCOBALAMIN
  5. CBD OIL [Concomitant]
  6. FEMCON FE [Concomitant]
     Active Substance: ETHINYL ESTRADIOL\NORETHINDRONE ACETATE
  7. MULTI VITAMIN AND PROBIOTIC [Concomitant]

REACTIONS (5)
  - Self injurious behaviour [None]
  - Product quality issue [None]
  - Aggression [None]
  - Feeling abnormal [None]
  - Illiteracy [None]

NARRATIVE: CASE EVENT DATE: 20160527
